FAERS Safety Report 21967828 (Version 5)
Quarter: 2023Q1

REPORT INFORMATION
  Report Type: Spontaneous
  Country: US (occurrence: US)
  Receive Date: 20230208
  Receipt Date: 20230329
  Transmission Date: 20230418
  Serious: No
  Sender: FDA-Public Use
  Company Number: US-PFIZER INC-PV202300014311

PATIENT
  Age: 11 Year
  Sex: Male
  Weight: 35.83 kg

DRUGS (3)
  1. GENOTROPIN [Suspect]
     Active Substance: SOMATROPIN
     Indication: Congenital adrenal gland hypoplasia
     Dosage: 1.5 MG, DAILY
     Dates: start: 202301
  2. GENOTROPIN [Suspect]
     Active Substance: SOMATROPIN
     Indication: Adrenogenital syndrome
     Dosage: 1.4 MG, DAILY
     Dates: start: 202301
  3. GENOTROPIN [Suspect]
     Active Substance: SOMATROPIN
     Dosage: 1.4 MG, DAILY
     Dates: start: 20230119

REACTIONS (5)
  - Off label use [Unknown]
  - Product prescribing error [Unknown]
  - Device leakage [Unknown]
  - Poor quality device used [Unknown]
  - Wrong technique in device usage process [Unknown]

NARRATIVE: CASE EVENT DATE: 20230101
